FAERS Safety Report 5814338-4 (Version None)
Quarter: 2008Q3

REPORT INFORMATION
  Report Type: 
  Country: None (occurrence: None)
  Receive Date: 20080715
  Receipt Date: 20080701
  Transmission Date: 20090109
  Serious: Yes (Death, Other)
  Sender: FDA-Public Use
  Company Number: 080616-0000510

PATIENT
  Age: 5 Day
  Sex: Male

DRUGS (14)
  1. NEOPROFEN [Suspect]
     Indication: PATENT DUCTUS ARTERIOSUS
     Dosage: 4 MG; QD; 3.2 MG; QD
     Dates: start: 20080416, end: 20080416
  2. NEOPROFEN [Suspect]
     Indication: PATENT DUCTUS ARTERIOSUS
     Dosage: 4 MG; QD; 3.2 MG; QD
     Dates: start: 20080417, end: 20080418
  3. AMINO ACID PED 10% [Concomitant]
  4. AMPICILLIN [Concomitant]
  5. BETACTANT [Concomitant]
  6. CAFFEINE CITRATE [Concomitant]
  7. VITAMIN A [Concomitant]
  8. INSULIN HUMAN [Concomitant]
  9. FENTANYL [Concomitant]
  10. VANCOMYCIN HCL [Concomitant]
  11. TOTAL PARENTERAL NUTRITION AND LIPID INFUSION [Concomitant]
  12. SODIUM BICARBONATE [Concomitant]
  13. FLUCONAZOLE [Concomitant]
  14. HEPARIN LOCK-FLUSH [Concomitant]

REACTIONS (5)
  - BLOOD PRESSURE DECREASED [None]
  - EUTHYROID SICK SYNDROME [None]
  - INTRAVENTRICULAR HAEMORRHAGE [None]
  - LARGE INTESTINE PERFORATION [None]
  - THROMBOCYTOPENIA [None]
